FAERS Safety Report 8231069-4 (Version None)
Quarter: 2012Q1

REPORT INFORMATION
  Report Type: 
  Country: None (occurrence: None)
  Receive Date: 20120323
  Receipt Date: 20120313
  Transmission Date: 20120608
  Serious: Yes (Death)
  Sender: FDA-Public Use
  Company Number: US-JNJFOC-20100501978

PATIENT
  Age: 24 Year
  Sex: Male
  Weight: 68.7 kg

DRUGS (4)
  1. ASACOL [Concomitant]
  2. MERCAPTOPURINE [Concomitant]
     Indication: CROHN'S DISEASE
     Dates: start: 20040101, end: 20060801
  3. PREDNISONE TAB [Concomitant]
     Indication: CROHN'S DISEASE
  4. REMICADE [Suspect]
     Indication: CROHN'S DISEASE
     Route: 042
     Dates: start: 20040101, end: 20060801

REACTIONS (5)
  - CEREBRAL HAEMORRHAGE [None]
  - SEPSIS [None]
  - HEPATOSPLENIC T-CELL LYMPHOMA [None]
  - RESPIRATORY FAILURE [None]
  - NEUROPATHY PERIPHERAL [None]
